FAERS Safety Report 8831909 (Version 1)
Quarter: 2012Q4

REPORT INFORMATION
  Report Type: 
  Country: US (occurrence: US)
  Receive Date: 20121009
  Receipt Date: 20121009
  Transmission Date: 20130627
  Serious: No
  Sender: FDA-Public Use
  Company Number: US-BAYER-2012-103945

PATIENT
  Age: 50 Year
  Sex: Male
  Weight: 159 kg

DRUGS (3)
  1. ALEVE CAPLET/TABLET,MIDOL EXTENDED RELIEF CAPLET [Suspect]
     Indication: ANALGESIC THERAPY
     Dosage: 2 DF, UNK
     Route: 048
  2. THYROID THERAPY [Concomitant]
  3. HIGH CHOLESTEROL MEDICATION [Concomitant]

REACTIONS (1)
  - Pruritus generalised [Recovered/Resolved]
